FAERS Safety Report 19754679 (Version 1)
Quarter: 2021Q3

REPORT INFORMATION
  Report Type: Spontaneous
  Country: CN (occurrence: CN)
  Receive Date: 20210827
  Receipt Date: 20210827
  Transmission Date: 20211014
  Serious: Yes (Hospitalization)
  Sender: FDA-Public Use
  Company Number: CN-STRIDES ARCOLAB LIMITED-2021SP026794

PATIENT
  Age: 66 Year
  Sex: Female

DRUGS (3)
  1. PREDNISOLONE. [Suspect]
     Active Substance: PREDNISOLONE
     Indication: THYROID B-CELL LYMPHOMA
     Dosage: 40 MILLIGRAM/SQ. METER, FROM DAY 1 TO 5.
     Route: 048
  2. CYCLOPHOSPHAMIDE. [Suspect]
     Active Substance: CYCLOPHOSPHAMIDE
     Indication: THYROID B-CELL LYMPHOMA
     Dosage: 750 MILLIGRAM/SQ. METER ON DAY 1
     Route: 042
  3. VINCRISTINE [Suspect]
     Active Substance: VINCRISTINE
     Indication: THYROID B-CELL LYMPHOMA
     Dosage: 1.4 MILLIGRAM/SQ. METER
     Route: 042

REACTIONS (1)
  - Tracheo-oesophageal fistula [Unknown]
